FAERS Safety Report 12891951 (Version 3)
Quarter: 2016Q4

REPORT INFORMATION
  Report Type: Spontaneous
  Country: TR (occurrence: TR)
  Receive Date: 20161028
  Receipt Date: 20161128
  Transmission Date: 20170207
  Serious: Yes (Hospitalization, Other)
  Sender: FDA-Public Use
  Company Number: TR-STRIDES ARCOLAB LIMITED-2016SP016364

PATIENT

DRUGS (1)
  1. IBUPROFEN. [Suspect]
     Active Substance: IBUPROFEN
     Indication: PYREXIA
     Dosage: 30 MG/KG/DAY
     Route: 048

REACTIONS (7)
  - Skin lesion [Recovered/Resolved]
  - Purpura [Recovered/Resolved]
  - Cholestasis [Recovered/Resolved]
  - Vanishing bile duct syndrome [Recovered/Resolved]
  - Toxic epidermal necrolysis [Recovered/Resolved]
  - Jaundice [Recovered/Resolved]
  - Dermatitis bullous [Recovered/Resolved]
